FAERS Safety Report 7429645-1 (Version None)
Quarter: 2011Q2

REPORT INFORMATION
  Report Type: 
  Country: None (occurrence: None)
  Receive Date: 20110421
  Receipt Date: 20110408
  Transmission Date: 20111010
  Serious: Yes (Hospitalization)
  Sender: FDA-Public Use
  Company Number: FR-PFIZER INC-2011077988

PATIENT
  Age: 66 Year
  Sex: Male

DRUGS (3)
  1. DECAPEPTYL - SLOW RELEASE [Suspect]
     Dosage: 12.25 MG EVERY 3 MONTHS
     Route: 030
     Dates: start: 20101101
  2. TAXOTERE [Concomitant]
     Dosage: 120 MG, CYCLIC , EVERY 3 WEEKS
     Route: 042
     Dates: start: 20101122
  3. ESTRACYT [Suspect]
     Indication: PROSTATE CANCER
     Dosage: 140 MG, 2X/DAY
     Route: 048
     Dates: start: 20101101, end: 20110308

REACTIONS (1)
  - PRINZMETAL ANGINA [None]
